FAERS Safety Report 16431625 (Version 2)
Quarter: 2019Q3

REPORT INFORMATION
  Report Type: Spontaneous
  Country: JP (occurrence: JP)
  Receive Date: 20190614
  Receipt Date: 20190826
  Transmission Date: 20191004
  Serious: Yes (Hospitalization)
  Sender: FDA-Public Use
  Company Number: JP-BAYER-2019-110823

PATIENT
  Age: 76 Year
  Sex: Male
  Weight: 63.3 kg

DRUGS (5)
  1. NEXAVAR [Suspect]
     Active Substance: SORAFENIB
     Indication: METASTASES TO LIVER
  2. ATORVASTATIN [Concomitant]
     Active Substance: ATORVASTATIN
     Dosage: 1 DF, QD (EVENING)
     Route: 048
  3. RYZODEG 70/30 [Concomitant]
     Active Substance: INSULIN ASPART\INSULIN DEGLUDEC
     Dosage: 8 IU, QD (MORNING)
     Route: 058
  4. NESINA [Concomitant]
     Active Substance: ALOGLIPTIN BENZOATE
     Dosage: 1 DF, BID (MORNING AND EVENING)
     Route: 048
  5. NEXAVAR [Suspect]
     Active Substance: SORAFENIB
     Indication: HEPATOCELLULAR CARCINOMA
     Dosage: 400 MG, QD
     Route: 048
     Dates: start: 20160614, end: 20160713

REACTIONS (10)
  - Hepatocellular carcinoma [None]
  - Decreased appetite [None]
  - Cachexia [None]
  - Nausea [Recovered/Resolved]
  - Ascites [Recovered/Resolved]
  - Hyperammonaemia [None]
  - Malaise [Recovering/Resolving]
  - Paraneoplastic syndrome [None]
  - Vomiting [Recovered/Resolved]
  - Abdominal distension [None]

NARRATIVE: CASE EVENT DATE: 201607
